FAERS Safety Report 5201673-6 (Version None)
Quarter: 2007Q1

REPORT INFORMATION
  Report Type: 
  Country: None (occurrence: None)
  Receive Date: 20070108
  Receipt Date: 20061229
  Transmission Date: 20070707
  Serious: Yes (Other)
  Sender: FDA-Public Use
  Company Number: US-BOEHRINGER INGELHEIM PHARMACEUTICALS, INC.-2006-BP-07399BP

PATIENT
  Sex: Male
  Weight: 80.74 kg

DRUGS (10)
  1. MIRAPEX [Suspect]
     Indication: PARKINSON'S DISEASE
     Route: 048
     Dates: start: 20000901
  2. ARTANE [Concomitant]
     Indication: PARKINSON'S DISEASE
     Route: 048
     Dates: start: 19970101
  3. AMANTADINE HCL [Concomitant]
     Route: 048
     Dates: start: 20060101
  4. SINEMET [Concomitant]
     Indication: PARKINSON'S DISEASE
     Dates: start: 20030601
  5. WELLBUTRIN XL [Concomitant]
  6. PAXIL [Concomitant]
     Dates: start: 20030101
  7. CARB/LEVO [Concomitant]
  8. COMTAN [Concomitant]
  9. VIAGRA [Concomitant]
  10. AZILECT [Concomitant]

REACTIONS (9)
  - ABNORMAL BEHAVIOUR [None]
  - COMPULSIONS [None]
  - ECONOMIC PROBLEM [None]
  - EMOTIONAL DISORDER [None]
  - GAMBLING [None]
  - INSOMNIA [None]
  - MENTAL DISORDER [None]
  - PERSONALITY CHANGE [None]
  - SUICIDAL IDEATION [None]
